FAERS Safety Report 6674375-7 (Version None)
Quarter: 2010Q1

REPORT INFORMATION
  Report Type: 
  Country: None (occurrence: None)
  Receive Date: 20100329
  Receipt Date: 20090609
  Transmission Date: 20100710
  Serious: Yes (Other)
  Sender: FDA-Public Use
  Company Number: 2009201078

PATIENT
  Age: 30 Year
  Sex: Male

DRUGS (7)
  1. GEODON [Suspect]
     Indication: SCHIZOPHRENIA
     Dosage: ORAL
     Route: 048
     Dates: start: 20070215
  2. BENZTROPINE MESYLATE [Suspect]
  3. ZOCOR [Concomitant]
  4. INDERAL [Concomitant]
  5. LEXAPRO [Concomitant]
  6. BUPROPION HCL [Concomitant]
  7. PRILOSEC (OMEPRAZOLE) [Concomitant]

REACTIONS (6)
  - ANXIETY [None]
  - DIZZINESS [None]
  - DYSPNOEA [None]
  - DYSTONIA [None]
  - EXTRAPYRAMIDAL DISORDER [None]
  - MUSCLE TIGHTNESS [None]
